FAERS Safety Report 5046437-1 (Version None)
Quarter: 2006Q3

REPORT INFORMATION
  Report Type: 
  Country: None (occurrence: None)
  Receive Date: 20060710
  Receipt Date: 20060706
  Transmission Date: 20061208
  Serious: Yes (Other)
  Sender: FDA-Public Use
  Company Number: US-GLAXOSMITHKLINE-A0611327A

PATIENT
  Sex: Female

DRUGS (5)
  1. COREG [Suspect]
     Dosage: 12.5MG PER DAY
     Route: 048
     Dates: start: 20010101
  2. DIOVAN [Concomitant]
  3. NEXIUM [Concomitant]
  4. SPIRONOLACTONE [Concomitant]
  5. FISH OIL [Concomitant]

REACTIONS (2)
  - GOITRE [None]
  - HYPERTHYROIDISM [None]
